FAERS Safety Report 7335024-8 (Version None)
Quarter: 2011Q1

REPORT INFORMATION
  Report Type: 
  Country: None (occurrence: None)
  Receive Date: 20110307
  Receipt Date: 20110224
  Transmission Date: 20110831
  Serious: No
  Sender: FDA-Public Use
  Company Number: US-JNJFOC-20110300217

PATIENT
  Age: 21 Year
  Sex: Male

DRUGS (3)
  1. COGENTIN [Concomitant]
     Route: 065
  2. INVEGA SUSTENNA [Suspect]
     Indication: PRODUCT USED FOR UNKNOWN INDICATION
     Route: 030
  3. WELLBUTRIN [Concomitant]
     Route: 065

REACTIONS (2)
  - SLUGGISHNESS [None]
  - MOBILITY DECREASED [None]
